FAERS Safety Report 5266521-7 (Version None)
Quarter: 2007Q1

REPORT INFORMATION
  Report Type: 
  Country: None (occurrence: None)
  Receive Date: 20070315
  Receipt Date: 20070305
  Transmission Date: 20070707
  Serious: Yes (Hospitalization)
  Sender: FDA-Public Use
  Company Number: FR-ELI_LILLY_AND_COMPANY-FR200703001021

PATIENT
  Age: 76 Year
  Sex: Female

DRUGS (5)
  1. FORTEO [Suspect]
     Indication: OSTEOPOROSIS
     Dosage: 20 UG, DAILY (1/D)
     Route: 058
     Dates: start: 20060614
  2. SKENAN [Concomitant]
     Indication: PAIN
     Dosage: 30 MG, DAILY (1/D)
     Route: 048
  3. HYDROCORTISONE [Concomitant]
     Dosage: 30 MG, DAILY (1/D)
  4. SERETIDE [Concomitant]
  5. NITROGLYCERIN [Concomitant]
     Dosage: 10 MG, UNKNOWN

REACTIONS (3)
  - BRONCHITIS [None]
  - OEDEMA PERIPHERAL [None]
  - RESPIRATORY DISTRESS [None]
